FAERS Safety Report 6141924-7 (Version None)
Quarter: 2009Q1

REPORT INFORMATION
  Report Type: 
  Country: None (occurrence: None)
  Receive Date: 20090331
  Receipt Date: 20090331
  Transmission Date: 20090719
  Serious: Yes (Other)
  Sender: FDA-Public Use
  Company Number: None

PATIENT
  Age: 40 Year
  Sex: Female

DRUGS (1)
  1. REGLAN [Suspect]
     Indication: NAUSEA
     Dosage: 10MG 3 X A DAY PO
     Route: 048
     Dates: start: 20060725, end: 20070225

REACTIONS (10)
  - AKATHISIA [None]
  - ANOREXIA [None]
  - CONFUSIONAL STATE [None]
  - DEPRESSION [None]
  - FATIGUE [None]
  - INSOMNIA [None]
  - MUSCLE TWITCHING [None]
  - PARKINSONISM [None]
  - RESTLESSNESS [None]
  - SUICIDAL IDEATION [None]
